FAERS Safety Report 13639271 (Version 1)
Quarter: 2017Q2

REPORT INFORMATION
  Report Type: Spontaneous
  Country: US (occurrence: US)
  Receive Date: 20170609
  Receipt Date: 20170609
  Transmission Date: 20170830
  Serious: Yes (Other)
  Sender: FDA-Public Use
  Company Number: US-ROCHE-774298

PATIENT
  Sex: Female
  Weight: 117.9 kg

DRUGS (11)
  1. EFFEXOR XR [Suspect]
     Active Substance: VENLAFAXINE HYDROCHLORIDE
     Indication: PRODUCT USED FOR UNKNOWN INDICATION
     Route: 065
  2. KLONOPIN [Concomitant]
     Active Substance: CLONAZEPAM
     Indication: ANXIETY
     Route: 048
  3. CYMBALTA [Concomitant]
     Active Substance: DULOXETINE HYDROCHLORIDE
     Route: 065
  4. WELLBUTRIN XL [Concomitant]
     Active Substance: BUPROPION HYDROCHLORIDE
     Route: 065
  5. SYNTHROID [Concomitant]
     Active Substance: LEVOTHYROXINE SODIUM
     Route: 065
  6. SINGULAIR [Concomitant]
     Active Substance: MONTELUKAST SODIUM
     Route: 065
  7. CLONAZEPAM. [Suspect]
     Active Substance: CLONAZEPAM
     Indication: ANXIETY
     Route: 048
  8. EFFEXOR XR [Suspect]
     Active Substance: VENLAFAXINE HYDROCHLORIDE
     Dosage: DOSAGE LOWERED
     Route: 065
  9. NASONEX [Concomitant]
     Active Substance: MOMETASONE FUROATE
     Route: 065
  10. CYTOMEL [Concomitant]
     Active Substance: LIOTHYRONINE SODIUM
     Route: 065
  11. ACIPHEX [Concomitant]
     Active Substance: RABEPRAZOLE SODIUM
     Route: 065

REACTIONS (4)
  - Stress [Unknown]
  - Anxiety [Unknown]
  - Withdrawal syndrome [Unknown]
  - Drug ineffective [Unknown]
